FAERS Safety Report 4539650-0 (Version None)
Quarter: 2004Q4

REPORT INFORMATION
  Report Type: 
  Country: None (occurrence: None)
  Receive Date: 20041228
  Receipt Date: 20040916
  Transmission Date: 20050328
  Serious: Yes (Hospitalization)
  Sender: FDA-Public Use
  Company Number: DE-MERCK-0409DEU00117

PATIENT
  Age: 26 Month
  Sex: Male
  Weight: 14 kg

DRUGS (2)
  1. SINGULAIR [Suspect]
     Indication: BRONCHITIS CHRONIC
     Route: 048
     Dates: start: 20040706, end: 20040820
  2. SINGULAIR [Suspect]
     Indication: ASTHMA
     Route: 048
     Dates: start: 20040706, end: 20040820

REACTIONS (8)
  - DIFFICULTY IN WALKING [None]
  - DRUG INEFFECTIVE [None]
  - EXANTHEM [None]
  - HAEMOGLOBIN DECREASED [None]
  - OEDEMA PERIPHERAL [None]
  - PAIN IN EXTREMITY [None]
  - PRURITUS GENERALISED [None]
  - RASH PRURITIC [None]
